FAERS Safety Report 8215040-4 (Version None)
Quarter: 2012Q1

REPORT INFORMATION
  Report Type: 
  Country: None (occurrence: None)
  Receive Date: 20120229
  Receipt Date: 20110523
  Transmission Date: 20120608
  Serious: Yes (Death)
  Sender: FDA-Public Use
  Company Number: PHHY2011US30814

PATIENT
  Age: 54 Year
  Sex: Male
  Weight: 83 kg

DRUGS (1)
  1. NEORAL [Suspect]
     Indication: ORGAN TRANSPLANT
     Dosage: 100 MG, BID, ORAL
     Route: 048
     Dates: start: 20090423

REACTIONS (1)
  - LUNG CANCER METASTATIC [None]
